FAERS Safety Report 9054166 (Version 1)
Quarter: 2013Q1

REPORT INFORMATION
  Report Type: Report from Study
  Country: US (occurrence: DE)
  Receive Date: 20130208
  Receipt Date: 20130208
  Transmission Date: 20140127
  Serious: Yes (Hospitalization)
  Sender: FDA-Public Use
  Company Number: DE-PFIZER INC-2013050602

PATIENT
  Age: 56 Year
  Sex: Female
  Weight: 56 kg

DRUGS (5)
  1. GENOTROPIN [Suspect]
     Dosage: 0.2 MG, 1X/DAY,7 INJECTIONS/WEEK
     Route: 058
     Dates: start: 20030221
  2. HYDROCORTISONE [Concomitant]
     Indication: BLOOD CORTICOTROPHIN DECREASED
     Dosage: UNK
     Dates: start: 20020615
  3. LEVOTHYROXINE [Concomitant]
     Indication: BLOOD THYROID STIMULATING HORMONE DECREASED
     Dosage: UNK
     Dates: start: 20020615
  4. CIBACEN [Concomitant]
     Indication: HYPERTENSION
     Dosage: UNK
     Dates: start: 20080805
  5. OMEPRAZOL [Concomitant]
     Indication: GASTRITIS
     Dosage: UNK
     Dates: start: 20080805

REACTIONS (1)
  - Cardiac disorder [Unknown]
